FAERS Safety Report 18596838 (Version 1)
Quarter: 2020Q4

REPORT INFORMATION
  Report Type: Report from Study
  Country: US (occurrence: US)
  Receive Date: 20201209
  Receipt Date: 20201209
  Transmission Date: 20210114
  Serious: Yes (Hospitalization)
  Sender: FDA-Public Use
  Company Number: US-GILEAD-2020-0508026

PATIENT
  Age: 24 Year
  Sex: Female

DRUGS (8)
  1. AZTREONAM LYSINE [Suspect]
     Active Substance: AZTREONAM LYSINE
     Indication: RESPIRATION ABNORMAL
     Dosage: INHALE ONE VIAL VIA NEBULIZER TID EVERY OTHER MONTH
     Route: 055
     Dates: start: 20180426
  2. BUDESONIDE. [Concomitant]
     Active Substance: BUDESONIDE
  3. VALPROIC ACID. [Concomitant]
     Active Substance: VALPROIC ACID
  4. IPRATROPIUM [Concomitant]
     Active Substance: IPRATROPIUM
  5. TRILEPTAL [Concomitant]
     Active Substance: OXCARBAZEPINE
  6. ALBUTEROL [SALBUTAMOL] [Concomitant]
     Active Substance: ALBUTEROL
  7. ZYRTEC [Concomitant]
     Active Substance: CETIRIZINE HYDROCHLORIDE
  8. BACLOFEN. [Concomitant]
     Active Substance: BACLOFEN

REACTIONS (2)
  - Oxygen saturation decreased [Unknown]
  - Off label use [Not Recovered/Not Resolved]

NARRATIVE: CASE EVENT DATE: 20201115
